FAERS Safety Report 16694368 (Version 2)
Quarter: 2019Q3

REPORT INFORMATION
  Report Type: Spontaneous
  Country: US (occurrence: US)
  Receive Date: 20190812
  Receipt Date: 20190814
  Transmission Date: 20191004
  Serious: No
  Sender: FDA-Public Use
  Company Number: US-PFIZER INC-2019119732

PATIENT
  Age: 31 Year
  Sex: Female
  Weight: 72.57 kg

DRUGS (1)
  1. RELPAX [Suspect]
     Active Substance: ELETRIPTAN HYDROBROMIDE
     Indication: MIGRAINE
     Dosage: 40 MG, AS NEEDED(ONCE AS NEEDED, CAN TAKE 2ND DOSE IF STILL NEEDED)
     Route: 048
     Dates: start: 2015

REACTIONS (3)
  - Anxiety [Unknown]
  - Migraine [Unknown]
  - Headache [Unknown]
